FAERS Safety Report 18850951 (Version 1)
Quarter: 2021Q1

REPORT INFORMATION
  Report Type: Spontaneous
  Country: CA (occurrence: CA)
  Receive Date: 20210205
  Receipt Date: 20210205
  Transmission Date: 20210420
  Serious: Yes (Hospitalization)
  Sender: FDA-Public Use
  Company Number: CA-CELLTRION INC.-2021CA001188

PATIENT

DRUGS (4)
  1. CANNABIS SATIVA [Concomitant]
     Active Substance: CANNABIS SATIVA FLOWERING TOP
     Dosage: 2 G, 1X/DAY
     Route: 065
  2. INFLIXIMAB PFIZER (UNKNOWN) [Suspect]
     Active Substance: INFLIXIMAB
     Indication: CROHN^S DISEASE
     Dosage: 800 MG
     Route: 042
  3. INFLIXIMAB PFIZER (UNKNOWN) [Suspect]
     Active Substance: INFLIXIMAB
     Indication: CROHN^S DISEASE
     Dosage: 800 MG
     Route: 042
  4. AMITRIPTYLINE [Suspect]
     Active Substance: AMITRIPTYLINE
     Dosage: UNK
     Route: 065

REACTIONS (2)
  - Off label use [Unknown]
  - Weight increased [Recovered/Resolved]
